FAERS Safety Report 20141066 (Version 2)
Quarter: 2021Q4

REPORT INFORMATION
  Report Type: Report from Study
  Country: US (occurrence: US)
  Receive Date: 20211202
  Receipt Date: 20211206
  Transmission Date: 20220303
  Serious: Yes (Hospitalization, Other)
  Sender: FDA-Public Use
  Company Number: US-GILEAD-2021-0559004

PATIENT
  Age: 49 Year
  Sex: Male

DRUGS (5)
  1. AMBRISENTAN [Suspect]
     Active Substance: AMBRISENTAN
     Indication: Pulmonary arterial hypertension
     Dosage: 10 MG, QD
     Route: 065
     Dates: start: 20170113
  2. ADEMPAS [Concomitant]
     Active Substance: RIOCIGUAT
  3. FUROSEMIDE [Concomitant]
     Active Substance: FUROSEMIDE
  4. UPTRAVI [Concomitant]
     Active Substance: SELEXIPAG
  5. FUROSEMIDE\POTASSIUM CHLORIDE [Concomitant]
     Active Substance: FUROSEMIDE\POTASSIUM CHLORIDE

REACTIONS (1)
  - Acute kidney injury [Not Recovered/Not Resolved]
